FAERS Safety Report 6084902-9 (Version None)
Quarter: 2009Q1

REPORT INFORMATION
  Report Type: 
  Country: None (occurrence: None)
  Receive Date: 20090220
  Receipt Date: 20090212
  Transmission Date: 20090719
  Serious: Yes (Other)
  Sender: FDA-Public Use
  Company Number: PHHY2009SE05285

PATIENT
  Sex: Male

DRUGS (4)
  1. RITALIN [Suspect]
     Indication: ATTENTION DEFICIT/HYPERACTIVITY DISORDER
     Dosage: 20 MG, UNK
     Route: 048
     Dates: start: 20090101
  2. RITALIN [Suspect]
     Indication: DISTURBANCE IN ATTENTION
  3. INDERAL [Concomitant]
     Dosage: 15 MGX2
  4. OMEGA [Concomitant]

REACTIONS (4)
  - ANXIETY [None]
  - DRUG INEFFECTIVE [None]
  - HEART RATE INCREASED [None]
  - PALPITATIONS [None]
